FAERS Safety Report 13571328 (Version 1)
Quarter: 2017Q2

REPORT INFORMATION
  Report Type: Spontaneous
  Country: US (occurrence: US)
  Receive Date: 20170523
  Receipt Date: 20170523
  Transmission Date: 20170830
  Serious: No
  Sender: FDA-Public Use
  Company Number: US-DRREDDYS-USA/USA/16/0081725

PATIENT
  Sex: Female

DRUGS (3)
  1. ZENATANE [Suspect]
     Active Substance: ISOTRETINOIN
     Indication: ACNE
     Route: 065
     Dates: start: 20160413
  2. ZENATANE [Suspect]
     Active Substance: ISOTRETINOIN
     Route: 065
     Dates: start: 20160509
  3. ZENATANE [Suspect]
     Active Substance: ISOTRETINOIN
     Dosage: ONCE IN THE MORNING AND ONCE IN THE EVENING
     Route: 065
     Dates: start: 20160608, end: 20160720

REACTIONS (5)
  - Vomiting [Unknown]
  - Nausea [Unknown]
  - Arthralgia [Unknown]
  - Dry skin [Unknown]
  - Lip dry [Unknown]
